FAERS Safety Report 4571203-0 (Version None)
Quarter: 2005Q1

REPORT INFORMATION
  Report Type: 
  Country: None (occurrence: None)
  Receive Date: 20050202
  Receipt Date: 20050118
  Transmission Date: 20050727
  Serious: Yes (Death)
  Sender: FDA-Public Use
  Company Number: B0365147A

PATIENT
  Age: 36 Year

DRUGS (3)
  1. ALKERAN [Suspect]
     Indication: SARCOMA
     Dosage: 140 MG/M2/CONTINUOUS/ UNKNOWN
  2. ETOPOSIDE [Suspect]
     Indication: SARCOMA
     Dosage: 60 MG/KG/CONTINUOUS / INTRAVENOUS
     Route: 042
  3. STEM CELL TRANSPLANT (FORMULATION UNKNOWN) (STEM CELL TRANSPLANT) [Suspect]

REACTIONS (2)
  - CARDIO-RESPIRATORY ARREST [None]
  - COMPLICATIONS OF BONE MARROW TRANSPLANT [None]
